FAERS Safety Report 13540630 (Version 3)
Quarter: 2017Q2

REPORT INFORMATION
  Report Type: Spontaneous
  Country: BR (occurrence: BR)
  Receive Date: 20170512
  Receipt Date: 20170601
  Transmission Date: 20170830
  Serious: Yes (Other)
  Sender: FDA-Public Use
  Company Number: BR-009507513-1705BRA004315

PATIENT
  Age: 34 Year
  Sex: Female
  Weight: 68 kg

DRUGS (5)
  1. NUVARING [Suspect]
     Active Substance: ETHINYL ESTRADIOL\ETONOGESTREL
     Dosage: A NEW VAGINAL RING, UNK
     Route: 067
     Dates: start: 20170426, end: 20170430
  2. NUVARING [Suspect]
     Active Substance: ETHINYL ESTRADIOL\ETONOGESTREL
     Dosage: A NEW VAGINAL RING, UNK
     Route: 067
     Dates: start: 20170430, end: 20170504
  3. NUVARING [Suspect]
     Active Substance: ETHINYL ESTRADIOL\ETONOGESTREL
     Indication: HORMONE REPLACEMENT THERAPY
     Dosage: 1 VAGINAL RING EVERY 21 DAYS, WITHOUT FREE INTERVAL
     Route: 067
     Dates: start: 2012, end: 20170425
  4. NUVARING [Suspect]
     Active Substance: ETHINYL ESTRADIOL\ETONOGESTREL
     Dosage: UNK
     Route: 067
     Dates: start: 20170504
  5. NUVARING [Suspect]
     Active Substance: ETHINYL ESTRADIOL\ETONOGESTREL
     Dosage: A NEW VAGINAL RING, UNK
     Route: 067
     Dates: start: 20170430

REACTIONS (6)
  - Inappropriate schedule of drug administration [Unknown]
  - Vulvovaginal injury [Unknown]
  - Device breakage [Unknown]
  - Vulvovaginal pain [Unknown]
  - Device breakage [Unknown]
  - Product use in unapproved indication [Unknown]

NARRATIVE: CASE EVENT DATE: 2012
